FAERS Safety Report 10662010 (Version 1)
Quarter: 2014Q4

REPORT INFORMATION
  Report Type: Report from Study
  Country: US (occurrence: US)
  Receive Date: 20141218
  Receipt Date: 20141218
  Transmission Date: 20150529
  Serious: Yes (Death)
  Sender: FDA-Public Use
  Company Number: PHEH2014US025397

PATIENT
  Sex: Male

DRUGS (1)
  1. EXJADE [Suspect]
     Active Substance: DEFERASIROX
     Indication: PLASMA PROTEIN METABOLISM DISORDER
     Dosage: 3 DF (1500 MG), DAILY
     Route: 048
     Dates: start: 201309

REACTIONS (2)
  - Death [Fatal]
  - Product use issue [Unknown]
